FAERS Safety Report 24360218 (Version 1)
Quarter: 2024Q3

REPORT INFORMATION
  Report Type: Spontaneous
  Country: ID (occurrence: ID)
  Receive Date: 20240925
  Receipt Date: 20240925
  Transmission Date: 20241017
  Serious: Yes (Life-Threatening, Hospitalization, Other)
  Sender: JUBILANT
  Company Number: ID-JUBILANT CADISTA PHARMACEUTICALS-2024ID001325

PATIENT
  Age: 27 Year
  Sex: Female

DRUGS (31)
  1. CELECOXIB [Suspect]
     Active Substance: CELECOXIB
     Indication: Neuralgia
     Dosage: 100 MG, 2 TIMES PER DAY (HIGH DOSES)
  2. CELECOXIB [Suspect]
     Active Substance: CELECOXIB
     Indication: Sedative therapy
  3. CELECOXIB [Suspect]
     Active Substance: CELECOXIB
     Indication: Back pain
  4. DEXMEDETOMIDINE [Suspect]
     Active Substance: DEXMEDETOMIDINE
     Indication: Neuralgia
     Dosage: UP TO 0.8 MICROGRAMS/KILOGRAM BODY WEIGHT/HOUR-HIGH DOSES
  5. DEXMEDETOMIDINE [Suspect]
     Active Substance: DEXMEDETOMIDINE
     Indication: Sedative therapy
  6. DEXMEDETOMIDINE [Suspect]
     Active Substance: DEXMEDETOMIDINE
     Indication: Back pain
  7. FENTANYL [Suspect]
     Active Substance: FENTANYL\FENTANYL CITRATE
     Indication: Neuralgia
     Dosage: INTERMITTENT-HIGH DOSES
  8. FENTANYL [Suspect]
     Active Substance: FENTANYL\FENTANYL CITRATE
     Indication: Sedative therapy
  9. FENTANYL [Suspect]
     Active Substance: FENTANYL\FENTANYL CITRATE
     Indication: Back pain
  10. KETAMINE [Suspect]
     Active Substance: KETAMINE
     Indication: Sedative therapy
     Dosage: INTERMITTENT-HIGH DOSES
  11. KETAMINE [Suspect]
     Active Substance: KETAMINE
     Indication: Neuralgia
  12. KETAMINE [Suspect]
     Active Substance: KETAMINE
     Indication: Back pain
  13. MORPHINE [Suspect]
     Active Substance: MORPHINE
     Indication: Neuralgia
     Dosage: 2 MG, INTERMITTENT-HIGH DOSES
     Route: 042
  14. MORPHINE [Suspect]
     Active Substance: MORPHINE
     Indication: Sedative therapy
     Dosage: HIGH DOSES-15 MG OVER 24 HOURS
  15. MORPHINE [Suspect]
     Active Substance: MORPHINE
     Indication: Breakthrough pain
  16. MORPHINE [Suspect]
     Active Substance: MORPHINE
     Indication: Back pain
  17. PREGABALIN [Suspect]
     Active Substance: PREGABALIN
     Indication: Neuralgia
     Dosage: 75 MG, 2 TIMES PER DAY (HIGH DOSES)
  18. PREGABALIN [Suspect]
     Active Substance: PREGABALIN
     Indication: Sedative therapy
  19. PREGABALIN [Suspect]
     Active Substance: PREGABALIN
     Indication: Back pain
  20. PROPOFOL [Suspect]
     Active Substance: PROPOFOL
     Indication: Sedative therapy
     Dosage: UP TO 100 MG/HOUR-HIGH DOSES
  21. PROPOFOL [Suspect]
     Active Substance: PROPOFOL
     Indication: Back pain
  22. PROPOFOL [Suspect]
     Active Substance: PROPOFOL
     Indication: Neuralgia
  23. TRAMADOL [Suspect]
     Active Substance: TRAMADOL
     Indication: Back pain
     Dosage: 100 MG, 3 TIMES PER DAY
  24. TRAMADOL [Suspect]
     Active Substance: TRAMADOL
     Indication: Sedative therapy
  25. TRAMADOL [Suspect]
     Active Substance: TRAMADOL
     Indication: Neuralgia
  26. DULOXETINE [Concomitant]
     Active Substance: DULOXETINE
     Indication: Back pain
  27. DULOXETINE [Concomitant]
     Active Substance: DULOXETINE
     Indication: Neuralgia
  28. METHYLPREDNISOLONE [Concomitant]
     Active Substance: METHYLPREDNISOLONE
     Indication: Meningitis bacterial
     Dosage: 500 MG, ONCE PER DAY
  29. MEROPENEM [Concomitant]
     Active Substance: MEROPENEM
     Indication: Meningitis bacterial
     Dosage: 2 G, 3 TIMES PER DAY
  30. RISPERIDONE [Concomitant]
     Active Substance: RISPERIDONE
     Indication: Back pain
     Dosage: UNKNOWN
  31. RISPERIDONE [Concomitant]
     Active Substance: RISPERIDONE
     Indication: Neuralgia

REACTIONS (2)
  - Sedation complication [Unknown]
  - Altered state of consciousness [Unknown]
